FAERS Safety Report 9888855 (Version 3)
Quarter: 2014Q1

REPORT INFORMATION
  Report Type: Spontaneous
  Country: US (occurrence: None)
  Receive Date: 20140207
  Receipt Date: 20140306
  Transmission Date: 20141002
  Serious: Yes (Death, Hospitalization)
  Sender: FDA-Public Use
  Company Number: 151529

PATIENT
  Age: 65 Year
  Sex: Male

DRUGS (1)
  1. CYTARATINE FOR INJ. USP 100MG -BEDFORD LABS, INC. [Suspect]
     Indication: ACUTE MYELOID LEUKAEMIA
     Dosage: CYCLICAL
     Dates: start: 20130528

REACTIONS (4)
  - Pneumonia [None]
  - Pyrexia [None]
  - Cardiac arrest [None]
  - Respiratory failure [None]
